FAERS Safety Report 4749023-3 (Version None)
Quarter: 2005Q3

REPORT INFORMATION
  Report Type: 
  Country: None (occurrence: None)
  Receive Date: 20050817
  Receipt Date: 20050811
  Transmission Date: 20060218
  Serious: Yes (Life-Threatening, Hospitalization, Disabling, Other)
  Sender: FDA-Public Use
  Company Number: 2004020107

PATIENT
  Age: 46 Year
  Sex: Male
  Weight: 110 kg

DRUGS (2)
  1. DOFETILIDE (DOFETILIDE) [Suspect]
     Indication: ATRIAL FIBRILLATION
     Dosage: 1000 MCG (2 IN 1 D), ORAL
     Route: 048
     Dates: start: 20040222, end: 20040322
  2. PHENPROCOUMON (PHENPROCOUMON) [Concomitant]

REACTIONS (9)
  - BRAIN HYPOXIA [None]
  - CARDIAC ARREST [None]
  - COMA [None]
  - CONGESTIVE CARDIOMYOPATHY [None]
  - CONVULSION [None]
  - ELECTROCARDIOGRAM QT PROLONGED [None]
  - PNEUMONIA [None]
  - TORSADE DE POINTES [None]
  - VENTRICULAR FIBRILLATION [None]
